FAERS Safety Report 8361635-7 (Version None)
Quarter: 2012Q2

REPORT INFORMATION
  Report Type: 
  Country: None (occurrence: None)
  Receive Date: 20120514
  Receipt Date: 20120501
  Transmission Date: 20120825
  Serious: Yes (Other)
  Sender: FDA-Public Use
  Company Number: 2012EK000008

PATIENT
  Age: 20 Year
  Weight: 72.6 kg

DRUGS (9)
  1. TACROLIMUS [Suspect]
     Indication: IMMUNOSUPPRESSION
     Dosage: 0.069;0.1 MG/KG
  2. SODIUM NITROPRUSSIDE [Suspect]
     Indication: PRODUCT USED FOR UNKNOWN INDICATION
     Dosage: UNK, IV
     Route: 042
  3. BASILIXIMAB [Concomitant]
  4. MYCOPHENOLATE MOFETIL [Concomitant]
  5. MOFETIL [Concomitant]
  6. PREDNISOLONE [Concomitant]
  7. CARDENE [Suspect]
     Indication: HYPERTENSION
     Dosage: UNK, IV
     Route: 042
  8. NIFEDIPINE [Suspect]
     Indication: PRODUCT USED FOR UNKNOWN INDICATION
     Dosage: UNK, PO
     Route: 048
  9. METHYLPREDNISOLONE [Concomitant]

REACTIONS (2)
  - OLIGURIA [None]
  - DRUG INTERACTION [None]
